FAERS Safety Report 8450557 (Version 2)
Quarter: 2014Q4

REPORT INFORMATION
  Report Type: Spontaneous
  Country: IT (occurrence: IT)
  Receive Date: 20120309
  Receipt Date: 20141107
  Transmission Date: 20150529
  Serious: Yes (Hospitalization)
  Sender: FDA-Public Use
  Company Number: IT-SANOFI-AVENTIS-2012SA014766

PATIENT
  Age: 54 Year
  Sex: Female

DRUGS (1)
  1. PETHIDINE HYDROCHLORIDE [Suspect]
     Active Substance: MEPERIDINE
     Indication: SEDATIVE THERAPY
     Route: 065

REACTIONS (10)
  - Product use issue [Unknown]
  - Hypotension [Recovering/Resolving]
  - Myoglobin blood increased [Recovered/Resolved]
  - Ventricular tachycardia [Recovered/Resolved]
  - Electrocardiogram ST segment elevation [Recovering/Resolving]
  - Troponin T increased [Recovered/Resolved]
  - Anaphylactic reaction [Recovering/Resolving]
  - Stress cardiomyopathy [Recovering/Resolving]
  - Chest pain [Recovering/Resolving]
  - Blood creatine phosphokinase MB increased [Recovered/Resolved]
